FAERS Safety Report 8709869 (Version 3)
Quarter: 2012Q4

REPORT INFORMATION
  Report Type: 
  Country: GB (occurrence: GB)
  Receive Date: 20120806
  Receipt Date: 20120830
  Transmission Date: 20130627
  Serious: Yes (Other)
  Sender: FDA-Public Use
  Company Number: PHFR2012GB004049

PATIENT
  Age: 42 Year
  Sex: Male

DRUGS (3)
  1. CLOZARIL [Suspect]
     Indication: SCHIZOPHRENIA
     Route: 048
     Dates: start: 20120620
  2. CLOZARIL [Suspect]
     Dosage: 50 mg, UNK
     Dates: start: 20120701
  3. CLOZARIL [Suspect]
     Dates: end: 20120723

REACTIONS (6)
  - Fall [Unknown]
  - Hypotonia [Unknown]
  - Circulatory collapse [Unknown]
  - Differential white blood cell count abnormal [Unknown]
  - Eosinophil count increased [Unknown]
  - Drug intolerance [Unknown]
